FAERS Safety Report 6547976-4 (Version None)
Quarter: 2010Q1

REPORT INFORMATION
  Report Type: 
  Country: None (occurrence: None)
  Receive Date: 20100124
  Receipt Date: 20091204
  Transmission Date: 20100710
  Serious: No
  Sender: FDA-Public Use
  Company Number: US-ALEXION-A200901046

PATIENT
  Sex: Female

DRUGS (6)
  1. SOLIRIS [Suspect]
     Indication: PAROXYSMAL NOCTURNAL HAEMOGLOBINURIA
     Dosage: 600 MG, QW
     Route: 042
     Dates: start: 20090803
  2. SOLIRIS [Suspect]
     Dosage: 900 MG, Q2W
     Route: 042
     Dates: start: 20090831, end: 20091028
  3. COUMADIN [Concomitant]
     Dosage: 5 MG, QD
     Route: 048
  4. FOLIC ACID [Concomitant]
     Dosage: UNK
     Route: 048
  5. AMBIEN [Concomitant]
     Indication: SLEEP DISORDER
     Dosage: UNK
     Route: 048
  6. OXYCONTIN [Concomitant]
     Indication: PAIN
     Dosage: UNK
     Route: 048

REACTIONS (17)
  - ABDOMINAL PAIN [None]
  - ALOPECIA [None]
  - CHEST PAIN [None]
  - CHROMATURIA [None]
  - CONFUSIONAL STATE [None]
  - DYSPHAGIA [None]
  - DYSPNOEA [None]
  - FATIGUE [None]
  - HAEMOGLOBINURIA [None]
  - HEADACHE [None]
  - NAUSEA [None]
  - PAIN [None]
  - PAIN IN EXTREMITY [None]
  - QUALITY OF LIFE DECREASED [None]
  - SKIN DISCOLOURATION [None]
  - SYNCOPE [None]
  - WEIGHT DECREASED [None]
